FAERS Safety Report 4459755-2 (Version None)
Quarter: 2004Q3

REPORT INFORMATION
  Report Type: 
  Country: None (occurrence: None)
  Receive Date: 20040928
  Receipt Date: 20031211
  Transmission Date: 20050211
  Serious: No
  Sender: FDA-Public Use
  Company Number: US-BRISTOL-MYERS SQUIBB COMPANY-12455481

PATIENT

DRUGS (1)
  1. KENALOG-40 [Suspect]
     Dosage: ROUTE: INJECTION

REACTIONS (2)
  - ANXIETY [None]
  - INSOMNIA [None]
